FAERS Safety Report 4281238-3 (Version None)
Quarter: 2004Q1

REPORT INFORMATION
  Report Type: 
  Country: None (occurrence: None)
  Receive Date: 20040129
  Receipt Date: 20040119
  Transmission Date: 20041129
  Serious: Yes (Other)
  Sender: FDA-Public Use
  Company Number: PHRM2004FR00638

PATIENT
  Sex: Female

DRUGS (1)
  1. LAMISIL [Suspect]
     Indication: INTERTRIGO
     Dosage: 250 MG, QD
     Route: 048

REACTIONS (3)
  - PETECHIAE [None]
  - PURPURA [None]
  - SKIN REACTION [None]
